FAERS Safety Report 24557970 (Version 1)
Quarter: 2024Q4

REPORT INFORMATION
  Report Type: Spontaneous
  Country: CN (occurrence: CN)
  Receive Date: 20241028
  Receipt Date: 20241028
  Transmission Date: 20250115
  Serious: Yes (Hospitalization)
  Sender: RANBAXY
  Company Number: CN-SUN PHARMACEUTICAL INDUSTRIES LTD-2024R1-474053

PATIENT
  Age: 24 Year
  Sex: Female
  Weight: 44 kg

DRUGS (9)
  1. PALIPERIDONE [Suspect]
     Active Substance: PALIPERIDONE
     Indication: Schizophrenia
     Dosage: 12 MILLIGRAM, QD
     Route: 048
     Dates: start: 20240911, end: 20240927
  2. PALIPERIDONE [Suspect]
     Active Substance: PALIPERIDONE
     Dosage: 6 MILLIGRAM, QD
     Route: 048
     Dates: start: 20240911, end: 20240927
  3. PALIPERIDONE [Suspect]
     Active Substance: PALIPERIDONE
     Dosage: 13 MILLIGRAM, QD
     Route: 048
     Dates: start: 20240902, end: 20240911
  4. PALIPERIDONE [Suspect]
     Active Substance: PALIPERIDONE
     Dosage: 3 MILLIGRAM, QD
     Route: 048
     Dates: start: 20240927, end: 20241015
  5. PALIPERIDONE [Suspect]
     Active Substance: PALIPERIDONE
     Dosage: 3 MILLIGRAM, QD
     Route: 048
     Dates: start: 20240927, end: 20241015
  6. OLANZAPINE [Suspect]
     Active Substance: OLANZAPINE
     Indication: Schizophrenia
     Dosage: 5 MILLIGRAM, QD
     Route: 048
     Dates: start: 20240918, end: 20240923
  7. OLANZAPINE [Suspect]
     Active Substance: OLANZAPINE
     Dosage: 5 MILLIGRAM, QD
     Route: 048
     Dates: start: 20240927, end: 20241010
  8. OLANZAPINE [Suspect]
     Active Substance: OLANZAPINE
     Dosage: 10 MILLIGRAM, QD
     Route: 048
     Dates: start: 20240923, end: 20241010
  9. LORAZEPAM [Concomitant]
     Active Substance: LORAZEPAM
     Indication: Sleep disorder
     Dosage: 1 MILLIGRAM
     Route: 048
     Dates: start: 20240823, end: 20241005

REACTIONS (1)
  - Menstruation delayed [Unknown]

NARRATIVE: CASE EVENT DATE: 20241011
